FAERS Safety Report 6767688-1 (Version None)
Quarter: 2010Q2

REPORT INFORMATION
  Report Type: 
  Country: None (occurrence: None)
  Receive Date: 20100614
  Receipt Date: 20100610
  Transmission Date: 20101027
  Serious: Yes (Hospitalization, Other)
  Sender: FDA-Public Use
  Company Number: DE-ROCHE-608742

PATIENT
  Sex: Male
  Weight: 76.8 kg

DRUGS (29)
  1. METHOXY POLYETHYLENE GLYCOL-EPOETIN BETA [Suspect]
     Dosage: DOSE FREQUENCY: 1, DOSAGE FORM: PREFILLED SYRINGE, LAST DOSE PRIOR TO SAE: 08-DEC-2008.
     Route: 058
     Dates: start: 20081208
  2. MYCOPHENOLATE MOFETIL [Suspect]
     Route: 065
     Dates: start: 20080829
  3. MYCOPHENOLATE MOFETIL [Suspect]
     Route: 065
     Dates: start: 20080924
  4. DECORTIN [Suspect]
     Route: 065
     Dates: start: 20080824
  5. DECORTIN [Suspect]
     Route: 065
     Dates: start: 20081124
  6. DECORTIN [Suspect]
     Route: 065
     Dates: end: 20090309
  7. ADVAGRAF [Suspect]
     Route: 065
     Dates: start: 20081110
  8. ADVAGRAF [Suspect]
     Route: 065
  9. ADVAGRAF [Suspect]
     Route: 065
  10. AMIODARONE HCL [Concomitant]
     Dates: start: 20080924
  11. CONCOR [Concomitant]
     Dates: start: 20080924
  12. CINACALCET HYDROCHLORIDE [Concomitant]
     Dates: start: 20081002
  13. CINACALCET HYDROCHLORIDE [Concomitant]
  14. COTRIM [Concomitant]
     Dates: start: 20080924
  15. COTRIM [Concomitant]
  16. OMEPRAZOLE [Concomitant]
     Dates: start: 20080924
  17. TORSEMIDE [Concomitant]
     Dates: start: 20081002
  18. TORSEMIDE [Concomitant]
  19. VALCYTE [Concomitant]
     Dates: start: 20080804
  20. VALCYTE [Concomitant]
     Dates: start: 20081101
  21. VALCYTE [Concomitant]
     Dates: end: 20090131
  22. AMLODIPINE [Concomitant]
     Dates: start: 20080924
  23. AMLODIPINE [Concomitant]
  24. PRAVASTATIN SODIUM [Concomitant]
  25. CORDAREX [Concomitant]
  26. DIFLUCAN [Concomitant]
     Dates: end: 20090131
  27. LANTUS [Concomitant]
     Dosage: TDD: 10 IE
  28. ACTRAPID [Concomitant]
  29. ZIENAM [Concomitant]
     Dates: start: 20090302, end: 20090303

REACTIONS (3)
  - ENTEROCOCCAL INFECTION [None]
  - HAEMORRHAGIC ANAEMIA [None]
  - MENINGITIS ENTEROCOCCAL [None]
